FAERS Safety Report 6826756-6 (Version None)
Quarter: 2010Q3

REPORT INFORMATION
  Report Type: 
  Country: None (occurrence: None)
  Receive Date: 20100709
  Receipt Date: 20100702
  Transmission Date: 20110219
  Serious: Yes (Hospitalization)
  Sender: FDA-Public Use
  Company Number: JP-PFIZER INC-2010083139

PATIENT
  Age: 24 Year
  Sex: Male

DRUGS (1)
  1. ZITHROMAC SR [Suspect]
     Indication: URETHRITIS CHLAMYDIAL
     Dosage: 2 G, SINGLE
     Route: 048
     Dates: start: 20100611, end: 20100611

REACTIONS (2)
  - DYSPNOEA [None]
  - EYELID OEDEMA [None]
